FAERS Safety Report 9337957 (Version 1)
Quarter: 2013Q2

REPORT INFORMATION
  Report Type: Report from Study
  Country: CO (occurrence: CO)
  Receive Date: 20130609
  Receipt Date: 20130609
  Transmission Date: 20140414
  Serious: Yes (Death)
  Sender: FDA-Public Use
  Company Number: CO-SANOFI-AVENTIS-2013SA055457

PATIENT
  Age: 74 Year
  Sex: Female

DRUGS (10)
  1. LANTUS [Suspect]
     Indication: DIABETES MELLITUS
     Dosage: DOSE:25 UNIT(S)
     Route: 058
     Dates: start: 2011, end: 20130514
  2. INSULIN, REGULAR [Suspect]
     Indication: DIABETES MELLITUS
     Route: 058
     Dates: start: 2011, end: 20130514
  3. BISACODYL [Suspect]
     Indication: PRODUCT USED FOR UNKNOWN INDICATION
     Route: 048
     Dates: end: 20130514
  4. ENALAPRIL [Suspect]
     Indication: HYPERTENSION
     Route: 048
     Dates: end: 20130514
  5. FERROUS SULFATE [Suspect]
     Indication: ANAEMIA
     Route: 048
     Dates: end: 20130514
  6. FOLIC ACID [Suspect]
     Indication: ANAEMIA
     Route: 048
     Dates: end: 20130514
  7. ACETYLSALICYLIC ACID [Suspect]
     Indication: PRODUCT USED FOR UNKNOWN INDICATION
     Route: 048
     Dates: end: 20130514
  8. SALBUTAMOL [Suspect]
     Indication: CHRONIC OBSTRUCTIVE PULMONARY DISEASE
     Route: 055
     Dates: end: 20130514
  9. BUDESONIDE/FORMOTEROL [Suspect]
     Indication: CHRONIC OBSTRUCTIVE PULMONARY DISEASE
     Route: 055
     Dates: end: 20130514
  10. TIOTROPIUM BROMIDE [Suspect]
     Indication: CHRONIC OBSTRUCTIVE PULMONARY DISEASE
     Route: 055
     Dates: end: 20130514

REACTIONS (1)
  - Chronic obstructive pulmonary disease [Fatal]
